FAERS Safety Report 21918000 (Version 1)
Quarter: 2023Q1

REPORT INFORMATION
  Report Type: Spontaneous
  Country: US (occurrence: None)
  Receive Date: 20230127
  Receipt Date: 20230127
  Transmission Date: 20230417
  Serious: No
  Sender: FDA-Public Use
  Company Number: US-Ultragenyx Pharmaceutical Inc.-US-UGNX-22-00851

PATIENT
  Age: 0 Year
  Sex: Male
  Weight: 8.03 kg

DRUGS (8)
  1. DOJOLVI [Suspect]
     Active Substance: TRIHEPTANOIN
     Indication: Very long-chain acyl-coenzyme A dehydrogenase deficiency
     Route: 048
     Dates: start: 20221108
  2. DOJOLVI [Suspect]
     Active Substance: TRIHEPTANOIN
     Dosage: SMALL AMOUNT OF DOJOLVI
     Route: 048
  3. DOJOLVI [Suspect]
     Active Substance: TRIHEPTANOIN
     Route: 048
  4. DOJOLVI [Suspect]
     Active Substance: TRIHEPTANOIN
     Route: 048
  5. DOJOLVI [Suspect]
     Active Substance: TRIHEPTANOIN
     Route: 048
  6. DOJOLVI [Suspect]
     Active Substance: TRIHEPTANOIN
     Route: 048
  7. D-VI-SOL DROPS [Concomitant]
     Indication: Product used for unknown indication
     Dosage: 10 (400)/ML DROPS
  8. ONDANSETRON HCL [Concomitant]
     Active Substance: ONDANSETRON HYDROCHLORIDE
     Indication: Product used for unknown indication
     Dosage: 4 MG / 5ML SOLUTION

REACTIONS (4)
  - Irritability [Recovered/Resolved]
  - Infantile spitting up [Recovered/Resolved]
  - Diarrhoea [Recovered/Resolved]
  - Infantile vomiting [Recovered/Resolved]

NARRATIVE: CASE EVENT DATE: 20221101
